FAERS Safety Report 7945783-9 (Version None)
Quarter: 2011Q4

REPORT INFORMATION
  Report Type: 
  Country: None (occurrence: None)
  Receive Date: 20111129
  Receipt Date: 20111122
  Transmission Date: 20120403
  Serious: Yes (Hospitalization)
  Sender: FDA-Public Use
  Company Number: DE-ROCHE-1015389

PATIENT
  Sex: Male
  Weight: 75.6 kg

DRUGS (2)
  1. BENDAMUSTINE [Suspect]
     Indication: MANTLE CELL LYMPHOMA
     Dosage: 360
     Route: 042
     Dates: start: 20111103
  2. MABTHERA [Suspect]
     Indication: MANTLE CELL LYMPHOMA
     Dosage: DOSE : 750
     Route: 042
     Dates: start: 20111102

REACTIONS (3)
  - PYREXIA [None]
  - DISORIENTATION [None]
  - DIARRHOEA [None]
